FAERS Safety Report 8375996-6 (Version None)
Quarter: 2012Q2

REPORT INFORMATION
  Report Type: 
  Country: None (occurrence: None)
  Receive Date: 20120522
  Receipt Date: 20120514
  Transmission Date: 20120825
  Serious: Yes (Other)
  Sender: FDA-Public Use
  Company Number: US-ASTRAZENECA-2009UW04135

PATIENT
  Age: 82 Year
  Sex: Female
  Weight: 70.8 kg

DRUGS (8)
  1. CORTISONE ACETATE [Concomitant]
  2. PRILOSEC [Suspect]
     Route: 048
  3. CRESTOR [Suspect]
     Route: 048
  4. METHOTREXATE [Concomitant]
  5. PRAVACHOL [Concomitant]
  6. CALCIUM CARBONATE [Concomitant]
  7. CRESTOR [Suspect]
     Route: 048
  8. PREDNISONE [Concomitant]

REACTIONS (11)
  - HYPERTENSION [None]
  - BACK PAIN [None]
  - DRUG INEFFECTIVE [None]
  - GASTROOESOPHAGEAL REFLUX DISEASE [None]
  - BASAL CELL CARCINOMA [None]
  - SKIN DISCOLOURATION [None]
  - ADVERSE EVENT [None]
  - MUSCULOSKELETAL PAIN [None]
  - ESCHERICHIA INFECTION [None]
  - THERAPY REGIMEN CHANGED [None]
  - SKIN ATROPHY [None]
